FAERS Safety Report 8335324-9 (Version None)
Quarter: 2012Q2

REPORT INFORMATION
  Report Type: 
  Country: None (occurrence: None)
  Receive Date: 20120503
  Receipt Date: 20120501
  Transmission Date: 20120825
  Serious: Yes (Life-Threatening, Disabling)
  Sender: FDA-Public Use
  Company Number: US-ROCHE-613230

PATIENT
  Sex: Female

DRUGS (10)
  1. MABTHERA [Suspect]
     Dosage: UNK
     Route: 065
  2. TRAMADOL HCL [Concomitant]
     Indication: PRODUCT USED FOR UNKNOWN INDICATION
  3. THIAMINE [Concomitant]
     Indication: PRODUCT USED FOR UNKNOWN INDICATION
  4. MABTHERA [Suspect]
     Indication: DERMATOMYOSITIS
     Dosage: UNK
     Route: 065
  5. HYDROCHLOROTHIAZIDE [Concomitant]
     Indication: PRODUCT USED FOR UNKNOWN INDICATION
  6. FOLIC ACID [Concomitant]
     Indication: PRODUCT USED FOR UNKNOWN INDICATION
  7. METHOTREXATE [Suspect]
     Indication: DERMATOMYOSITIS
     Dosage: 25 MG, 1/WEEK
     Route: 058
  8. ACTONEL [Concomitant]
     Indication: PRODUCT USED FOR UNKNOWN INDICATION
  9. PREDNISONE TAB [Suspect]
     Indication: DERMATOMYOSITIS
     Dosage: UNK MG, QD
     Route: 048
  10. INFLIXIMAB [Suspect]
     Indication: DERMATOMYOSITIS
     Dosage: 400 MG, Q8W
     Route: 042
     Dates: start: 20080313, end: 20080821

REACTIONS (1)
  - PROGRESSIVE MULTIFOCAL LEUKOENCEPHALOPATHY [None]
